FAERS Safety Report 6807880-0 (Version None)
Quarter: 2010Q2

REPORT INFORMATION
  Report Type: 
  Country: None (occurrence: None)
  Receive Date: 20100629
  Receipt Date: 20090304
  Transmission Date: 20101027
  Serious: No
  Sender: FDA-Public Use
  Company Number: US-PFIZER INC-2008101460

PATIENT
  Age: 64 Year
  Sex: Female

DRUGS (5)
  1. XANAX [Suspect]
     Dosage: UNK
     Dates: start: 20080201
  2. KLONOPIN [Suspect]
     Indication: THERAPY CESSATION
     Dosage: 0.5 MG, 4X/DAY
  3. CLONAZEPAM [Suspect]
     Dosage: 0.5 MG, 4X/DAY
     Route: 048
     Dates: start: 20080601
  4. PAXIL [Concomitant]
     Dosage: UNK
     Dates: start: 20080201, end: 20081201
  5. PREMPRO [Concomitant]
     Dosage: UNK

REACTIONS (9)
  - ABDOMINAL DISCOMFORT [None]
  - AMNESIA [None]
  - CONFUSIONAL STATE [None]
  - DEPRESSION [None]
  - DYSKINESIA [None]
  - DYSURIA [None]
  - HOT FLUSH [None]
  - INSOMNIA [None]
  - ROAD TRAFFIC ACCIDENT [None]
